FAERS Safety Report 6618402-1 (Version None)
Quarter: 2010Q1

REPORT INFORMATION
  Report Type: 
  Country: None (occurrence: None)
  Receive Date: 20100308
  Receipt Date: 20100225
  Transmission Date: 20100710
  Serious: Yes (Hospitalization)
  Sender: FDA-Public Use
  Company Number: B0633702A

PATIENT
  Age: 38 Year
  Sex: Male

DRUGS (1)
  1. AMOXICILLIN [Suspect]
     Indication: NASOPHARYNGITIS

REACTIONS (20)
  - ABDOMINAL DISTENSION [None]
  - ABDOMINAL PAIN [None]
  - ANAEMIA [None]
  - BONE MARROW FAILURE [None]
  - DEFAECATION URGENCY [None]
  - DIARRHOEA [None]
  - ESCHERICHIA INFECTION [None]
  - GASTROINTESTINAL DISORDER [None]
  - HAEMORRHAGE [None]
  - HYPOTONIA [None]
  - INFLAMMATION [None]
  - LEUKOPENIA [None]
  - MUCOSAL ULCERATION [None]
  - NEUTROPENIC COLITIS [None]
  - PANCYTOPENIA [None]
  - PYREXIA [None]
  - RECTAL HAEMORRHAGE [None]
  - RECTAL TENESMUS [None]
  - SEPTIC SHOCK [None]
  - THROMBOCYTOPENIA [None]
